FAERS Safety Report 7228479-0 (Version None)
Quarter: 2011Q1

REPORT INFORMATION
  Report Type: 
  Country: None (occurrence: None)
  Receive Date: 20110114
  Receipt Date: 20110107
  Transmission Date: 20110831
  Serious: Yes (Hospitalization, Other)
  Sender: FDA-Public Use
  Company Number: US-US-EMD SERONO, INC.-7000279

PATIENT
  Sex: Female

DRUGS (10)
  1. REBIF [Suspect]
     Indication: MULTIPLE SCLEROSIS
     Route: 058
     Dates: start: 20091001
  2. SINGULAIR [Concomitant]
  3. AMANTADINE [Concomitant]
  4. PAXIL [Concomitant]
     Indication: DEPRESSION
  5. COLACE [Concomitant]
  6. PRILOSEC [Concomitant]
  7. PULMICORT [Concomitant]
  8. ALLEGRA [Concomitant]
  9. ALBUTEROL [Concomitant]
  10. NASAREL [Concomitant]
     Route: 045

REACTIONS (4)
  - MULTIPLE SCLEROSIS RELAPSE [None]
  - HYSTERECTOMY [None]
  - HEADACHE [None]
  - BLOOD POTASSIUM DECREASED [None]
